FAERS Safety Report 18114282 (Version 1)
Quarter: 2020Q3

REPORT INFORMATION
  Report Type: Spontaneous
  Country: US (occurrence: US)
  Receive Date: 20200805
  Receipt Date: 20200805
  Transmission Date: 20201103
  Serious: Yes (Death)
  Sender: FDA-Public Use
  Company Number: None

PATIENT
  Age: 83 Year
  Sex: Male

DRUGS (4)
  1. TACROLIMUS 1 MG [Suspect]
     Active Substance: TACROLIMUS
  2. ATORVASTATIN 20 MG [Concomitant]
     Active Substance: ATORVASTATIN
  3. LANTUS SOLOSTAR [Concomitant]
     Active Substance: INSULIN GLARGINE
  4. ZORTRESS [Suspect]
     Active Substance: EVEROLIMUS
     Route: 048
     Dates: start: 20190701, end: 20200727

REACTIONS (1)
  - Death [None]

NARRATIVE: CASE EVENT DATE: 20200727
